FAERS Safety Report 14100032 (Version 2)
Quarter: 2018Q1

REPORT INFORMATION
  Report Type: Spontaneous
  Country: CA (occurrence: CA)
  Receive Date: 20171017
  Receipt Date: 20180223
  Transmission Date: 20180508
  Serious: Yes (Other)
  Sender: FDA-Public Use
  Company Number: CA-PFIZER INC-2017103992

PATIENT
  Age: 44 Year
  Sex: Female
  Weight: 68.27 kg

DRUGS (2)
  1. XELJANZ [Suspect]
     Active Substance: TOFACITINIB CITRATE
     Indication: RHEUMATOID ARTHRITIS
     Dosage: 5 MG, TWICE DAILY (AT 5AM AND 5PM)
     Route: 048
     Dates: start: 20170201
  2. METHOTREXATE SODIUM. [Suspect]
     Active Substance: METHOTREXATE SODIUM
     Indication: RHEUMATOID ARTHRITIS
     Dosage: 20 MG, WEEKLY
     Route: 058
     Dates: end: 2017

REACTIONS (16)
  - Glaucoma [Unknown]
  - Pain [Unknown]
  - Depressed mood [Recovered/Resolved]
  - Fatigue [Recovered/Resolved]
  - Drug effect incomplete [Unknown]
  - Drug dose omission [Unknown]
  - Arthralgia [Recovered/Resolved]
  - Dyspepsia [Unknown]
  - Arthralgia [Recovered/Resolved]
  - Erythema [Unknown]
  - Pain in extremity [Recovered/Resolved]
  - Overweight [Unknown]
  - Condition aggravated [Recovered/Resolved]
  - Malaise [Unknown]
  - Eye disorder [Unknown]
  - Feeding disorder [Unknown]

NARRATIVE: CASE EVENT DATE: 201702
